FAERS Safety Report 6764327-0 (Version None)
Quarter: 2010Q2

REPORT INFORMATION
  Report Type: 
  Country: None (occurrence: None)
  Receive Date: 20100608
  Receipt Date: 20100524
  Transmission Date: 20101027
  Serious: Yes (Other)
  Sender: FDA-Public Use
  Company Number: FKO201000208

PATIENT
  Age: 52 Year
  Sex: Female

DRUGS (7)
  1. PACLITAXEL [Suspect]
     Indication: OVARIAN EPITHELIAL CANCER
     Dosage: 175 MG/M2, THREE TIMES WEEKLY; INTRAVENOUS (NOT OTHERWISE SPECIFIED)
     Route: 042
  2. CARBOPLATIN (CABOPLATIN) [Concomitant]
  3. FETANYL (FENTANYL) [Concomitant]
  4. THIOPENTAL SODIUM [Concomitant]
  5. ROCURONIUM BROMIDE [Concomitant]
  6. PROPOFOL [Concomitant]
  7. ALFENTANIL [Concomitant]

REACTIONS (13)
  - ARTHRALGIA [None]
  - CARBON MONOXIDE DIFFUSING CAPACITY DECREASED [None]
  - DYSPNOEA [None]
  - FACE OEDEMA [None]
  - FIBROSIS [None]
  - HYPERSENSITIVITY [None]
  - LOCALISED OEDEMA [None]
  - MICROSTOMIA [None]
  - OEDEMA PERIPHERAL [None]
  - PARAESTHESIA [None]
  - PULMONARY VASCULAR DISORDER [None]
  - RAYNAUD'S PHENOMENON [None]
  - SCLERODERMA [None]
